FAERS Safety Report 9952313 (Version 1)
Quarter: 2014Q1

REPORT INFORMATION
  Report Type: Report from Study
  Country: US (occurrence: US)
  Receive Date: 20140304
  Receipt Date: 20140304
  Transmission Date: 20141002
  Serious: No
  Sender: FDA-Public Use
  Company Number: US-ABBVIE-13P-163-1071811-00

PATIENT
  Age: 38 Year
  Sex: Female

DRUGS (16)
  1. HUMIRA [Suspect]
     Indication: CROHN^S DISEASE
     Dates: start: 20121004
  2. DILANTIN [Concomitant]
     Indication: GRAND MAL CONVULSION
     Dosage: 3 TABS IN AM, 4 TABS AT NIGHT
  3. SINGULAIR [Concomitant]
     Indication: ASTHMA
     Dosage: AT BEDTIME
  4. SINGULAIR [Concomitant]
     Indication: HYPERSENSITIVITY
  5. PRILOSEC [Concomitant]
     Indication: GASTROOESOPHAGEAL REFLUX DISEASE
  6. SEROQUEL [Concomitant]
     Indication: INSOMNIA
     Dosage: AT BEDTIME
  7. HYDROCODONE [Concomitant]
     Indication: BACK PAIN
     Dosage: EVERY 4-6 HOURS, 7.5/3.25MG
  8. B-12 [Concomitant]
     Indication: CROHN^S DISEASE
     Dosage: 1CC
  9. LASIX [Concomitant]
     Indication: OEDEMA PERIPHERAL
  10. PROAIR [Concomitant]
     Indication: ASTHMA
     Dosage: INHALER
  11. REMERON [Concomitant]
     Indication: INSOMNIA
     Dosage: AT BEDTIME
  12. PHENERGAN [Concomitant]
     Indication: NAUSEA
  13. METHOCARBAMOL [Concomitant]
     Indication: MYALGIA
     Dosage: AS NEEDED
  14. PAXIL [Concomitant]
     Indication: DEPRESSION
  15. DIAZEPAM [Concomitant]
     Indication: ANXIETY
     Dosage: AS NEEDED
  16. CALCIUM [Concomitant]
     Indication: PRODUCT USED FOR UNKNOWN INDICATION

REACTIONS (2)
  - Bronchitis [Not Recovered/Not Resolved]
  - Injection site urticaria [Not Recovered/Not Resolved]
